FAERS Safety Report 23794269 (Version 1)
Quarter: 2024Q2

REPORT INFORMATION
  Report Type: Spontaneous
  Country: US (occurrence: None)
  Receive Date: 20240426
  Receipt Date: 20240426
  Transmission Date: 20240716
  Serious: No
  Sender: FDA-Public Use
  Company Number: None

PATIENT
  Age: 54 Year
  Sex: Female
  Weight: 86.18 kg

DRUGS (3)
  1. OTEZLA [Suspect]
     Active Substance: APREMILAST
     Indication: Psoriasis
     Dosage: FREQUENCY : TWICE A DAY;?
     Route: 048
     Dates: start: 202207
  2. OTEZLA [Suspect]
     Active Substance: APREMILAST
     Indication: Psoriatic arthropathy
  3. VTAMA [Concomitant]
     Active Substance: TAPINAROF
     Dosage: OTHER QUANTITY : APPLYTOAFFECTED AR;?FREQUENCY : AS NEEDED;?
     Dates: start: 202309

REACTIONS (2)
  - Nephrolithiasis [None]
  - Intentional dose omission [None]
